FAERS Safety Report 11174509 (Version 3)
Quarter: 2015Q3

REPORT INFORMATION
  Report Type: Report from Study
  Country: US (occurrence: US)
  Receive Date: 20150609
  Receipt Date: 20150827
  Transmission Date: 20151125
  Serious: Yes (Hospitalization)
  Sender: FDA-Public Use
  Company Number: US-EISAI MEDICAL RESEARCH-EC-2015-007403

PATIENT
  Age: 50 Year
  Sex: Female
  Weight: 140.6 kg

DRUGS (22)
  1. LENVIMA [Suspect]
     Active Substance: LENVATINIB
     Route: 048
     Dates: start: 20150622, end: 20150624
  2. PREDNISOLONE. [Concomitant]
     Active Substance: PREDNISOLONE
  3. LENVIMA [Suspect]
     Active Substance: LENVATINIB
     Route: 048
     Dates: start: 20150630, end: 20150706
  4. LENVIMA [Suspect]
     Active Substance: LENVATINIB
     Route: 048
     Dates: start: 20150713, end: 20150715
  5. KLONOPIN [Concomitant]
     Active Substance: CLONAZEPAM
  6. ASPIRIN. [Concomitant]
     Active Substance: ASPIRIN
  7. TIMOLOL. [Concomitant]
     Active Substance: TIMOLOL
  8. LENVIMA [Suspect]
     Active Substance: LENVATINIB
     Indication: THYROID CANCER
     Route: 048
     Dates: start: 20150515, end: 20150526
  9. METOPROLOL TARTRATE. [Concomitant]
     Active Substance: METOPROLOL TARTRATE
  10. ALLOPURINOL. [Concomitant]
     Active Substance: ALLOPURINOL
  11. MOBIC [Concomitant]
     Active Substance: MELOXICAM
  12. ZANTAC [Concomitant]
     Active Substance: RANITIDINE HYDROCHLORIDE
  13. CYCLOPENTOLATE [Concomitant]
     Active Substance: CYCLOPENTOLATE
  14. SYNTHROID [Concomitant]
     Active Substance: LEVOTHYROXINE SODIUM
  15. DILAUDID [Concomitant]
     Active Substance: HYDROMORPHONE HYDROCHLORIDE
  16. LENVIMA [Suspect]
     Active Substance: LENVATINIB
     Route: 048
     Dates: start: 20150720, end: 20150729
  17. LENVIMA [Suspect]
     Active Substance: LENVATINIB
     Route: 048
     Dates: start: 20150805
  18. METHADONE [Concomitant]
     Active Substance: METHADONE HYDROCHLORIDE
  19. MVI [Concomitant]
     Active Substance: VITAMINS
  20. AMITRIPTYLINE [Concomitant]
     Active Substance: AMITRIPTYLINE
  21. CLARITIN [Concomitant]
     Active Substance: LORATADINE
  22. VITAMIN E [Concomitant]
     Active Substance: .ALPHA.-TOCOPHEROL

REACTIONS (9)
  - Headache [Unknown]
  - Eating disorder [Unknown]
  - Vomiting [Not Recovered/Not Resolved]
  - Electrolyte imbalance [Unknown]
  - Vertigo [Recovering/Resolving]
  - Dehydration [Unknown]
  - Diarrhoea [Not Recovered/Not Resolved]
  - Nausea [Not Recovered/Not Resolved]
  - Malaise [Unknown]

NARRATIVE: CASE EVENT DATE: 201505
